FAERS Safety Report 7478310-3 (Version None)
Quarter: 2011Q2

REPORT INFORMATION
  Report Type: 
  Country: None (occurrence: None)
  Receive Date: 20110513
  Receipt Date: 20110504
  Transmission Date: 20111010
  Serious: Yes (Other)
  Sender: FDA-Public Use
  Company Number: US-ASTRAZENECA-2011SE26679

PATIENT
  Age: 65 Year
  Sex: Female

DRUGS (1)
  1. NEXIUM [Suspect]
     Route: 048
     Dates: start: 20110301

REACTIONS (9)
  - FATIGUE [None]
  - HODGKIN'S DISEASE [None]
  - NEOPLASM MALIGNANT [None]
  - THYROID CANCER [None]
  - ASTHENIA [None]
  - FEELING ABNORMAL [None]
  - GASTRITIS [None]
  - BARRETT'S OESOPHAGUS [None]
  - DYSGEUSIA [None]
